FAERS Safety Report 9620759 (Version 4)
Quarter: 2014Q1

REPORT INFORMATION
  Report Type: Spontaneous
  Country: CA (occurrence: CA)
  Receive Date: 20131015
  Receipt Date: 20140304
  Transmission Date: 20141002
  Serious: Yes (Other)
  Sender: FDA-Public Use
  Company Number: CA-ROCHE-1288570

PATIENT
  Age: 58 Year
  Sex: Female

DRUGS (12)
  1. XOLAIR [Suspect]
     Indication: ASTHMA
     Route: 058
     Dates: start: 20071003
  2. XOLAIR [Suspect]
     Route: 058
     Dates: start: 20090506
  3. XOLAIR [Suspect]
     Route: 065
     Dates: start: 20130227
  4. XOLAIR [Suspect]
     Route: 065
     Dates: start: 20130423
  5. XOLAIR [Suspect]
     Route: 065
     Dates: start: 20130731
  6. XOLAIR [Suspect]
     Route: 065
     Dates: start: 20130828
  7. XOLAIR [Suspect]
     Route: 065
     Dates: start: 20131009
  8. XOLAIR [Suspect]
     Route: 058
     Dates: start: 20130115
  9. XOLAIR [Suspect]
     Route: 065
     Dates: start: 20140106
  10. XOLAIR [Suspect]
     Route: 065
     Dates: start: 20140227
  11. SYMBICORT [Concomitant]
  12. PHYLLOCONTIN [Concomitant]

REACTIONS (7)
  - Blood pressure systolic increased [Unknown]
  - Influenza [Unknown]
  - Wheezing [Unknown]
  - Cough [Unknown]
  - Rales [Not Recovered/Not Resolved]
  - Nasopharyngitis [Recovered/Resolved]
  - Pneumonia [Unknown]
